FAERS Safety Report 16262554 (Version 2)
Quarter: 2019Q3

REPORT INFORMATION
  Report Type: Spontaneous
  Country: CA (occurrence: CA)
  Receive Date: 20190502
  Receipt Date: 20190702
  Transmission Date: 20191004
  Serious: Yes (Death, Other)
  Sender: FDA-Public Use
  Company Number: CA-AMGEN-CANSP2019067158

PATIENT

DRUGS (1)
  1. PANITUMUMAB [Suspect]
     Active Substance: PANITUMUMAB
     Indication: SQUAMOUS CELL CARCINOMA OF HEAD AND NECK
     Dosage: 9 MILLIGRAM/KILOGRAM, Q3WK (ON DAYS -7, 15 AND 36 OF RADIOTHERAPY)
     Route: 042

REACTIONS (30)
  - Pulmonary cavitation [Fatal]
  - Neutropenia [Fatal]
  - Lung neoplasm malignant [Fatal]
  - Mucosal inflammation [Unknown]
  - Hyponatraemia [Unknown]
  - Haemoglobin decreased [Unknown]
  - Nausea [Unknown]
  - Weight decreased [Unknown]
  - Squamous cell carcinoma of head and neck [Fatal]
  - Renal failure [Unknown]
  - Disease recurrence [Unknown]
  - Off label use [Unknown]
  - Dehydration [Unknown]
  - Deafness [Unknown]
  - Vomiting [Unknown]
  - Fatigue [Unknown]
  - Platelet count decreased [Unknown]
  - Pneumonia aspiration [Fatal]
  - Neutropenia [Unknown]
  - Tinnitus [Unknown]
  - Oropharyngeal pain [Unknown]
  - Hypomagnesaemia [Unknown]
  - Dermatitis [Unknown]
  - Hypokalaemia [Unknown]
  - Disease progression [Unknown]
  - Cardiac arrest [Fatal]
  - Apnoea [Unknown]
  - Laryngeal pain [Unknown]
  - Dysphagia [Unknown]
  - Acne [Unknown]
